FAERS Safety Report 19264414 (Version 1)
Quarter: 2021Q2

REPORT INFORMATION
  Report Type: Spontaneous
  Country: US (occurrence: US)
  Receive Date: 20210515
  Receipt Date: 20210515
  Transmission Date: 20210717
  Serious: No
  Sender: FDA-Public Use
  Company Number: None

PATIENT
  Sex: Male
  Weight: 99.6 kg

DRUGS (2)
  1. DAUNORUBICIN [Suspect]
     Active Substance: DAUNORUBICIN
  2. CYTARABINE. [Concomitant]
     Active Substance: CYTARABINE

REACTIONS (9)
  - Decreased appetite [None]
  - Splenic abscess [None]
  - Leukopenia [None]
  - Thrombocytopenia [None]
  - Tachycardia [None]
  - Diarrhoea [None]
  - Bacteraemia [None]
  - Abdominal pain [None]
  - Splenic rupture [None]

NARRATIVE: CASE EVENT DATE: 20210503
